FAERS Safety Report 24845411 (Version 6)
Quarter: 2025Q2

REPORT INFORMATION
  Report Type: Spontaneous
  Country: US (occurrence: US)
  Receive Date: 20250115
  Receipt Date: 20250529
  Transmission Date: 20250716
  Serious: No
  Sender: VERTEX
  Company Number: US-VERTEX PHARMACEUTICALS-2025-000462

PATIENT
  Age: 23 Year
  Sex: Male

DRUGS (2)
  1. TRIKAFTA [Suspect]
     Active Substance: ELEXACAFTOR\IVACAFTOR\TEZACAFTOR
     Indication: Cystic fibrosis
     Route: 048
  2. TRIKAFTA [Suspect]
     Active Substance: ELEXACAFTOR\IVACAFTOR\TEZACAFTOR
     Route: 048

REACTIONS (9)
  - Somnolence [Unknown]
  - Infection [Unknown]
  - Asthenia [Recovering/Resolving]
  - Food craving [Recovered/Resolved]
  - Lack of satiety [Recovering/Resolving]
  - Gastrooesophageal reflux disease [Recovered/Resolved]
  - Dyspepsia [Recovering/Resolving]
  - Brain fog [Recovered/Resolved]
  - Depressed mood [Recovering/Resolving]
